FAERS Safety Report 7911297 (Version 3)
Quarter: 2013Q4

REPORT INFORMATION
  Report Type: Spontaneous
  Country: US (occurrence: US)
  Receive Date: 20110422
  Receipt Date: 20131202
  Transmission Date: 20140711
  Serious: Yes (Hospitalization, Other)
  Sender: FDA-Public Use
  Company Number: US-ROCHE-761437

PATIENT
  Age: 22 Year
  Sex: Male
  Weight: 77.1 kg

DRUGS (1)
  1. ACCUTANE [Suspect]
     Indication: ACNE
     Route: 065
     Dates: start: 19930519, end: 199311

REACTIONS (10)
  - Colitis ulcerative [Unknown]
  - Depression [Unknown]
  - Rectal fissure [Unknown]
  - Ileus [Unknown]
  - Nephrolithiasis [Unknown]
  - Dry skin [Unknown]
  - Epistaxis [Unknown]
  - Nasal dryness [Unknown]
  - Dry mouth [Unknown]
  - Blood triglycerides increased [Unknown]
